FAERS Safety Report 4335643-7 (Version None)
Quarter: 2004Q2

REPORT INFORMATION
  Report Type: 
  Country: None (occurrence: None)
  Receive Date: 20040409
  Receipt Date: 20040319
  Transmission Date: 20050107
  Serious: Yes (Death)
  Sender: FDA-Public Use
  Company Number: US-ROCHE-362276

PATIENT
  Age: 67 Year
  Sex: Male
  Weight: 93.9 kg

DRUGS (9)
  1. XELODA [Suspect]
     Indication: RECTAL CANCER
     Route: 048
     Dates: start: 20040219
  2. PRILOSEC [Concomitant]
  3. PERCOCET [Concomitant]
  4. TEMAZEPAM [Concomitant]
  5. PEPCID [Concomitant]
  6. MELATONIN [Concomitant]
  7. ATENOLOL [Concomitant]
  8. LISINOPRIL [Concomitant]
  9. SULFATE [Concomitant]

REACTIONS (1)
  - MYOCARDIAL INFARCTION [None]
